FAERS Safety Report 6380995-X (Version None)
Quarter: 2009Q3

REPORT INFORMATION
  Report Type: 
  Country: None (occurrence: None)
  Receive Date: 20090925
  Receipt Date: 20090925
  Transmission Date: 20100115
  Serious: Yes (Life-Threatening, Hospitalization)
  Sender: FDA-Public Use
  Company Number: None

PATIENT
  Sex: Female
  Weight: 70.7611 kg

DRUGS (9)
  1. HALDOL [Suspect]
     Indication: SCHIZOPHRENIA, PARANOID TYPE
     Dosage: 500MG TWICE A DAY
  2. COGENTIN [Suspect]
     Indication: SCHIZOPHRENIA, PARANOID TYPE
     Dosage: 2MG TWICE A DAY
  3. STELAZINE [Concomitant]
  4. SELAQUOL [Concomitant]
  5. MELLARIL [Concomitant]
  6. ABILIFY [Concomitant]
  7. TRILAPHON [Concomitant]
  8. L-TRYPHAPHINE [Concomitant]
  9. ZYREXA(P) [Concomitant]

REACTIONS (1)
  - CARDIAC ARREST [None]
